FAERS Safety Report 18314143 (Version 1)
Quarter: 2020Q3

REPORT INFORMATION
  Report Type: Report from Study
  Country: US (occurrence: US)
  Receive Date: 20200925
  Receipt Date: 20200925
  Transmission Date: 20201103
  Serious: Yes (Hospitalization, Other)
  Sender: FDA-Public Use
  Company Number: US-JNJFOC-A-US2019-198706

PATIENT
  Age: 67 Year
  Sex: Female
  Weight: 80.73 kg

DRUGS (4)
  1. OPSUMIT [Suspect]
     Active Substance: MACITENTAN
     Indication: PULMONARY ARTERIAL HYPERTENSION
     Dosage: 10 MG, QD
     Route: 048
  2. COUMADIN [Concomitant]
     Active Substance: WARFARIN SODIUM
  3. TADALAFIL. [Suspect]
     Active Substance: TADALAFIL
     Indication: PRODUCT USED FOR UNKNOWN INDICATION
     Route: 065
  4. TYVASO [Concomitant]
     Active Substance: TREPROSTINIL

REACTIONS (17)
  - Nasopharyngitis [Unknown]
  - Anxiety [Unknown]
  - Post procedural haemorrhage [Unknown]
  - Biopsy [Unknown]
  - Fatigue [Unknown]
  - Haematoma [Unknown]
  - Syncope [Unknown]
  - Nausea [Unknown]
  - Flushing [Unknown]
  - Nasal congestion [Unknown]
  - Oxygen saturation decreased [Unknown]
  - Weight decreased [Unknown]
  - Depression [Unknown]
  - International normalised ratio decreased [Unknown]
  - Malaise [Unknown]
  - Dizziness [Unknown]
  - Unevaluable event [Unknown]
